FAERS Safety Report 18942249 (Version 1)
Quarter: 2021Q1

REPORT INFORMATION
  Report Type: Spontaneous
  Country: US (occurrence: US)
  Receive Date: 20210225
  Receipt Date: 20210225
  Transmission Date: 20210420
  Serious: No
  Sender: FDA-Public Use
  Company Number: US-ALXN-A202102625

PATIENT
  Age: 31 Year
  Sex: Male

DRUGS (1)
  1. STRENSIQ [Suspect]
     Active Substance: ASFOTASE ALFA
     Indication: PRODUCT USED FOR UNKNOWN INDICATION
     Dosage: UNK
     Route: 065
     Dates: start: 201711, end: 202010

REACTIONS (4)
  - Condition aggravated [Unknown]
  - Injection site atrophy [Unknown]
  - Drug ineffective [Unknown]
  - Injection site pain [Unknown]
